FAERS Safety Report 12287924 (Version 2)
Quarter: 2016Q2

REPORT INFORMATION
  Report Type: Report from Study
  Country: PT (occurrence: PT)
  Receive Date: 20160420
  Receipt Date: 20160427
  Transmission Date: 20160815
  Serious: Yes (Other)
  Sender: FDA-Public Use
  Company Number: PT-009507513-1604PRT011671

PATIENT
  Age: 55 Year
  Sex: Female

DRUGS (1)
  1. PEMBROLIZUMAB. [Suspect]
     Active Substance: PEMBROLIZUMAB
     Dosage: RECEIVED 2 CYCLES

REACTIONS (3)
  - Malignant neoplasm progression [Unknown]
  - Hepatic enzyme increased [Unknown]
  - Metastases to liver [Unknown]
